FAERS Safety Report 10541077 (Version 2)
Quarter: 2014Q4

REPORT INFORMATION
  Report Type: Spontaneous
  Country: FR (occurrence: FR)
  Receive Date: 20141024
  Receipt Date: 20141024
  Transmission Date: 20150529
  Serious: Yes (Life-Threatening, Hospitalization, Other)
  Sender: FDA-Public Use
  Company Number: FR-AMGEN-FRASP2011005398

PATIENT
  Age: 58 Year
  Sex: Male
  Weight: 55 kg

DRUGS (12)
  1. APROVEL [Concomitant]
     Active Substance: IRBESARTAN
     Dosage: UNK
     Route: 048
     Dates: end: 20100430
  2. NEURONTIN [Concomitant]
     Active Substance: GABAPENTIN
     Dosage: UNK
     Route: 048
     Dates: end: 20100503
  3. ZAMADOL                            /00599201/ [Suspect]
     Active Substance: TRAMADOL HYDROCHLORIDE
     Dosage: 200 MG, 1X/DAY
     Route: 048
     Dates: start: 20100407, end: 20100428
  4. ZAMADOL /00599201/ [Suspect]
     Active Substance: TRAMADOL HYDROCHLORIDE
     Indication: PRODUCT USED FOR UNKNOWN INDICATION
     Dosage: 200 MG, 2X/DAY
     Route: 048
     Dates: start: 201003
  5. STABLON /00956301/ [Suspect]
     Active Substance: TIANEPTINE
     Indication: PRODUCT USED FOR UNKNOWN INDICATION
     Dosage: 12.5 MG, 3X/DAY
     Route: 048
     Dates: start: 2009, end: 20100502
  6. DAFALGAN [Suspect]
     Active Substance: ACETAMINOPHEN
     Indication: PRODUCT USED FOR UNKNOWN INDICATION
     Dosage: 1 G, 4X/DAY
     Route: 048
     Dates: start: 201003, end: 20100428
  7. ATRIPLA [Concomitant]
     Active Substance: EFAVIRENZ\EMTRICITABINE\TENOFOVIR DISOPROXIL FUMARATE
     Dosage: UNK
     Route: 048
     Dates: start: 20100323, end: 20100609
  8. ZALDIAR [Concomitant]
     Active Substance: ACETAMINOPHEN\TRAMADOL HYDROCHLORIDE
     Dosage: UNK
     Route: 048
  9. ENBREL [Suspect]
     Active Substance: ETANERCEPT
     Indication: PSORIATIC ARTHROPATHY
     Dosage: 50 MG, QWK
     Route: 058
     Dates: start: 20100303, end: 20100430
  10. METOJECT /00113801/ [Suspect]
     Active Substance: METHOTREXATE SODIUM
     Indication: PSORIATIC ARTHROPATHY
     Dosage: 20 MG, WEEKLY
     Route: 048
     Dates: start: 20100303, end: 20100430
  11. SULFASALAZINE. [Suspect]
     Active Substance: SULFASALAZINE
     Indication: PRODUCT USED FOR UNKNOWN INDICATION
     Dosage: UNKNOWN
     Route: 065
  12. SPECIAFOLDINE [Concomitant]
     Active Substance: FOLIC ACID
     Dosage: UNK
     Route: 048
     Dates: start: 20090603, end: 20100430

REACTIONS (16)
  - Oxygen saturation decreased [Unknown]
  - Tachycardia [Unknown]
  - Hypotension [Unknown]
  - Acute kidney injury [Unknown]
  - Asthenia [Unknown]
  - Pulmonary mass [Not Recovered/Not Resolved]
  - Decreased appetite [Unknown]
  - Emphysema [Not Recovered/Not Resolved]
  - Bacteraemia [Unknown]
  - Atelectasis [Not Recovered/Not Resolved]
  - Pancytopenia [Unknown]
  - Alveolitis [Recovered/Resolved with Sequelae]
  - Pleural effusion [Recovered/Resolved]
  - Livedo reticularis [Unknown]
  - Renal tubular disorder [Unknown]
  - Vertigo [Unknown]

NARRATIVE: CASE EVENT DATE: 2010
